FAERS Safety Report 25387524 (Version 1)
Quarter: 2025Q2

REPORT INFORMATION
  Report Type: Report from Study
  Country: CO (occurrence: CO)
  Receive Date: 20250603
  Receipt Date: 20250603
  Transmission Date: 20250716
  Serious: Yes (Hospitalization, Other)
  Sender: TAKEDA
  Company Number: CO-TAKEDA-2025TUS051149

PATIENT
  Age: 11 Year
  Sex: Male
  Weight: 18 kg

DRUGS (1)
  1. HUMAN IMMUNOGLOBULIN G [Suspect]
     Active Substance: HUMAN IMMUNOGLOBULIN G
     Indication: Primary immunodeficiency syndrome
     Dosage: 10 GRAM, Q4WEEKS
     Dates: start: 20241215

REACTIONS (2)
  - Pneumonia [Unknown]
  - Gastrostomy tube site complication [Unknown]

NARRATIVE: CASE EVENT DATE: 20250527
